FAERS Safety Report 6750453-9 (Version None)
Quarter: 2010Q2

REPORT INFORMATION
  Report Type: 
  Country: None (occurrence: None)
  Receive Date: 20100601
  Receipt Date: 20100519
  Transmission Date: 20101027
  Serious: Yes (Hospitalization)
  Sender: FDA-Public Use
  Company Number: US-ELI_LILLY_AND_COMPANY-US201005005739

PATIENT
  Sex: Female

DRUGS (9)
  1. CYMBALTA [Suspect]
     Indication: DEPRESSION
     Dosage: 30 MG, DAILY (1/D)
  2. CYMBALTA [Suspect]
     Dosage: 60 MG, 2/D
  3. ADDERALL [Concomitant]
     Dosage: 20 MG, DAILY (1/D)
  4. BENICAR [Concomitant]
  5. SYNTHROID [Concomitant]
     Dosage: 0.25 MG, UNK
  6. METHADONE [Concomitant]
     Dosage: 40 MG, UNK
  7. DILAUDID [Concomitant]
     Dosage: 8 MG, UNK
  8. TRAZODONE HCL [Concomitant]
     Dosage: 75 MG, EACH EVENING
  9. TIZANIDINE [Concomitant]
     Dosage: 8 MG, UNK

REACTIONS (11)
  - BLOOD GLUCOSE INCREASED [None]
  - BROWN-SEQUARD SYNDROME [None]
  - DEPRESSION [None]
  - DRUG INEFFECTIVE [None]
  - EUPHORIC MOOD [None]
  - HYPERTENSION [None]
  - NEURALGIA [None]
  - SURGERY [None]
  - TUMOUR EXCISION [None]
  - WEIGHT DECREASED [None]
  - WEIGHT INCREASED [None]
